FAERS Safety Report 4968175-3 (Version None)
Quarter: 2006Q2

REPORT INFORMATION
  Report Type: 
  Country: None (occurrence: None)
  Receive Date: 20060410
  Receipt Date: 20060328
  Transmission Date: 20061013
  Serious: Yes (Disabling, Other)
  Sender: FDA-Public Use
  Company Number: 2006AC00581

PATIENT
  Age: 58 Year
  Sex: Male

DRUGS (5)
  1. PROPOFOL [Suspect]
     Indication: ANAESTHESIA
  2. FENTANYL [Suspect]
     Indication: ANAESTHESIA
  3. SUCCINYLCHOLINE [Suspect]
     Indication: ANAESTHESIA
  4. ISOFLURANE [Suspect]
     Indication: MAINTENANCE OF ANAESTHESIA
     Dosage: 0.75 % - 1.5 % INSPIRED
  5. NITROUS OXIDE W/ OXYGEN [Suspect]
     Indication: MAINTENANCE OF ANAESTHESIA

REACTIONS (3)
  - CAROTID ARTERY OCCLUSION [None]
  - CEREBRAL ISCHAEMIA [None]
  - HYPOTENSION [None]
